FAERS Safety Report 25622815 (Version 1)
Quarter: 2025Q3

REPORT INFORMATION
  Report Type: Spontaneous
  Country: US (occurrence: None)
  Receive Date: 20250730
  Receipt Date: 20250730
  Transmission Date: 20251021
  Serious: Yes (Life-Threatening, Hospitalization)
  Sender: FDA-CTU
  Company Number: None

PATIENT
  Age: 80 Year
  Sex: Male
  Weight: 112.49 kg

DRUGS (1)
  1. OFEV [Suspect]
     Active Substance: NINTEDANIB

REACTIONS (8)
  - Intestinal perforation [None]
  - Anaemia [None]
  - Dyspnoea [None]
  - Hypoxia [None]
  - Disease progression [None]
  - Bone lesion [None]
  - Diarrhoea [None]
  - Colitis [None]

NARRATIVE: CASE EVENT DATE: 20250729
